FAERS Safety Report 25339039 (Version 1)
Quarter: 2025Q2

REPORT INFORMATION
  Report Type: Spontaneous
  Country: US (occurrence: US)
  Receive Date: 20250521
  Receipt Date: 20250521
  Transmission Date: 20250716
  Serious: No
  Sender: AMNEAL
  Company Number: US-AMNEAL PHARMACEUTICALS-2025-AMRX-00713

PATIENT
  Sex: Female
  Weight: 119.8 kg

DRUGS (1)
  1. CREXONT [Suspect]
     Active Substance: CARBIDOPA\LEVODOPA
     Indication: Parkinson^s disease
     Route: 048

REACTIONS (5)
  - Neuropathy peripheral [Unknown]
  - Tremor [Unknown]
  - Burning mouth syndrome [Unknown]
  - Decreased appetite [Unknown]
  - Living in residential institution [Unknown]
